FAERS Safety Report 5962163-6 (Version None)
Quarter: 2008Q4

REPORT INFORMATION
  Report Type: 
  Country: None (occurrence: None)
  Receive Date: 20081121
  Receipt Date: 20081117
  Transmission Date: 20090506
  Serious: Yes (Hospitalization)
  Sender: FDA-Public Use
  Company Number: BE-ASTRAZENECA-2008AC02515

PATIENT
  Age: 16817 Day
  Sex: Female

DRUGS (2)
  1. SIPRALEXA [Suspect]
     Dosage: SUICIDAL ATTEMPT WITH 20 CAPSULES OF SIPRALEXA
  2. SEROQUEL XR [Suspect]
     Indication: SCHIZOPHRENIA
     Route: 048

REACTIONS (2)
  - DEPRESSION [None]
  - SUICIDE ATTEMPT [None]
